FAERS Safety Report 21238441 (Version 1)
Quarter: 2022Q3

REPORT INFORMATION
  Report Type: Spontaneous
  Country: US (occurrence: US)
  Receive Date: 20220822
  Receipt Date: 20220822
  Transmission Date: 20221026
  Serious: Yes (Death, Other)
  Sender: FDA-Public Use
  Company Number: US-SA-SAC20220819002111

PATIENT
  Age: 77 Year
  Sex: Male

DRUGS (1)
  1. ZANTAC [Suspect]
     Active Substance: RANITIDINE HYDROCHLORIDE
     Indication: Dyspepsia
     Dosage: 75 MG, FREQUENCY: OTHER
     Route: 065
     Dates: start: 199001, end: 199301

REACTIONS (6)
  - Hepatic cancer stage IV [Fatal]
  - Lung carcinoma cell type unspecified stage IV [Fatal]
  - Pancreatic carcinoma stage IV [Fatal]
  - Gastric cancer stage IV [Fatal]
  - Throat cancer [Fatal]
  - Adrenal gland cancer [Fatal]

NARRATIVE: CASE EVENT DATE: 20200501
